FAERS Safety Report 8241001-5 (Version None)
Quarter: 2012Q1

REPORT INFORMATION
  Report Type: 
  Country: None (occurrence: None)
  Receive Date: 20120328
  Receipt Date: 20120323
  Transmission Date: 20120608
  Serious: Yes (Hospitalization)
  Sender: FDA-Public Use
  Company Number: JP-VERTEX PHARMACEUTICALS INC.-AE-2012-004352

PATIENT
  Age: 73 Year
  Sex: Female

DRUGS (3)
  1. TELAVIC (TELAPREVIR) [Suspect]
     Indication: HEPATITIS C
     Route: 048
     Dates: start: 20120131, end: 20120209
  2. RIBAVIRIN [Concomitant]
     Indication: HEPATITIS C
     Route: 048
     Dates: start: 20120131, end: 20120209
  3. PEGINTERFERON [Concomitant]
     Indication: HEPATITIS C
     Route: 051
     Dates: start: 20120131, end: 20120207

REACTIONS (1)
  - ABDOMINAL DISCOMFORT [None]
